FAERS Safety Report 9454123 (Version 1)
Quarter: 2013Q3

REPORT INFORMATION
  Report Type: Spontaneous
  Country: US (occurrence: None)
  Receive Date: 20130809
  Receipt Date: 20130809
  Transmission Date: 20140515
  Serious: Yes (Other)
  Sender: FDA-Public Use
  Company Number: None

PATIENT
  Age: 28 Year
  Sex: Male
  Weight: 129.28 kg

DRUGS (1)
  1. ZOLOFT [Suspect]
     Indication: ANXIETY
     Dates: start: 20130118, end: 20130130

REACTIONS (5)
  - Paraesthesia [None]
  - Hypoaesthesia [None]
  - Headache [None]
  - Feeling jittery [None]
  - Insomnia [None]
